FAERS Safety Report 19138830 (Version 1)
Quarter: 2021Q2

REPORT INFORMATION
  Report Type: Spontaneous
  Country: US (occurrence: US)
  Receive Date: 20210415
  Receipt Date: 20210415
  Transmission Date: 20210717
  Serious: No
  Sender: FDA-Public Use
  Company Number: US-BION-008613

PATIENT
  Age: 59 Year
  Sex: Female

DRUGS (1)
  1. NAPROXEN SODIUM. [Suspect]
     Active Substance: NAPROXEN SODIUM
     Indication: ARTHRALGIA
     Dosage: 1 CAPSULE EACH TIME, TWICE A DAY
     Route: 048
     Dates: start: 20200129, end: 20200130

REACTIONS (1)
  - Hypersensitivity [Recovered/Resolved]
